FAERS Safety Report 20231516 (Version 1)
Quarter: 2021Q4

REPORT INFORMATION
  Report Type: Spontaneous
  Country: US (occurrence: US)
  Receive Date: 20211227
  Receipt Date: 20211227
  Transmission Date: 20220303
  Serious: No
  Sender: FDA-Public Use
  Company Number: US-Accord-222290

PATIENT
  Age: 57 Year
  Sex: Male
  Weight: 65.77 kg

DRUGS (1)
  1. FINASTERIDE [Suspect]
     Active Substance: FINASTERIDE
     Indication: Product used for unknown indication
     Dosage: STRENGTH-1MG

REACTIONS (2)
  - Tinnitus [Unknown]
  - Product substitution issue [Unknown]
